FAERS Safety Report 13733480 (Version 1)
Quarter: 2017Q3

REPORT INFORMATION
  Report Type: Spontaneous
  Country: US (occurrence: US)
  Receive Date: 20170707
  Receipt Date: 20170707
  Transmission Date: 20171127
  Serious: No
  Sender: FDA-Public Use
  Company Number: US-ROCHE-1525069

PATIENT
  Sex: Male

DRUGS (1)
  1. GAZYVA [Suspect]
     Active Substance: OBINUTUZUMAB
     Indication: CHRONIC LYMPHOCYTIC LEUKAEMIA
     Dosage: DOSE REDUCED TO 75MG ON DAY 2.
     Route: 065
     Dates: start: 20150121

REACTIONS (3)
  - Hepatic enzyme increased [Not Recovered/Not Resolved]
  - Body temperature increased [Unknown]
  - Hypotension [Unknown]
